FAERS Safety Report 18611960 (Version 5)
Quarter: 2021Q2

REPORT INFORMATION
  Report Type: Spontaneous
  Country: GB (occurrence: GB)
  Receive Date: 20201214
  Receipt Date: 20210514
  Transmission Date: 20210717
  Serious: Yes (Other)
  Sender: FDA-Public Use
  Company Number: GB-ALLERGAN-2047280US

PATIENT
  Sex: Female

DRUGS (3)
  1. IMRALDI [Suspect]
     Active Substance: ADALIMUMAB
     Indication: ANKYLOSING SPONDYLITIS
     Dosage: 40 MG, BI?WEEKLY
     Route: 058
     Dates: start: 20201209
  2. IMRALDI [Suspect]
     Active Substance: ADALIMUMAB
     Dosage: 40 MG, BI?WEEKLY
     Route: 058
     Dates: start: 20201116
  3. PREDNISOLONE UNK [Suspect]
     Active Substance: PREDNISOLONE
     Indication: PRODUCT USED FOR UNKNOWN INDICATION
     Dosage: UNKNOWN
     Route: 065

REACTIONS (12)
  - Post-traumatic stress disorder [Unknown]
  - Osteoarthritis [Unknown]
  - Pruritus [Unknown]
  - Overweight [Unknown]
  - Fatigue [Unknown]
  - Arthralgia [Unknown]
  - Anaphylactic reaction [Unknown]
  - Mobility decreased [Unknown]
  - Tearfulness [Unknown]
  - Stress [Unknown]
  - Sleep disorder [Unknown]
  - Back pain [Unknown]
